FAERS Safety Report 13320438 (Version 2)
Quarter: 2019Q2

REPORT INFORMATION
  Report Type: Report from Study
  Country: IN (occurrence: IN)
  Receive Date: 20170310
  Receipt Date: 20190408
  Transmission Date: 20190711
  Serious: Yes (Hospitalization, Other)
  Sender: FDA-Public Use
  Company Number: IN-GLAXOSMITHKLINE-IN2017GSK034340

PATIENT

DRUGS (1)
  1. ORLISTAT. [Suspect]
     Active Substance: ORLISTAT
     Indication: LIVER TRANSPLANT

REACTIONS (2)
  - Drug-induced liver injury [Unknown]
  - Acute hepatic failure [Unknown]
